FAERS Safety Report 8370224-X (Version None)
Quarter: 2012Q2

REPORT INFORMATION
  Report Type: 
  Country: None (occurrence: None)
  Receive Date: 20120518
  Receipt Date: 20120511
  Transmission Date: 20120825
  Serious: Yes (Hospitalization, Other)
  Sender: FDA-Public Use
  Company Number: US-ELI_LILLY_AND_COMPANY-US201204007163

PATIENT
  Sex: Female
  Weight: 94.785 kg

DRUGS (24)
  1. FUROSEMIDE [Concomitant]
     Indication: PULMONARY ARTERIAL HYPERTENSION
     Dosage: 80 MG, BID
     Dates: start: 20100722
  2. OXYGEN [Concomitant]
     Dosage: 4 L, PRN
     Route: 045
     Dates: start: 20110201
  3. LIPITOR [Concomitant]
     Indication: HYPERCHOLESTEROLAEMIA
     Dosage: 40 MG, QD
     Route: 048
     Dates: start: 20111003
  4. CALCIUM CARBONATE [Concomitant]
     Indication: OSTEOPENIA
     Dosage: 1200 MG, UNK
     Dates: start: 20111001
  5. TREPROSTINIL [Concomitant]
     Dosage: 1 DF, UNK
     Dates: start: 20110509
  6. TREPROSTINIL [Concomitant]
     Dosage: 3.25 MG, EACH MORNING
     Dates: start: 20120409
  7. TREPROSTINIL [Concomitant]
     Dosage: 3.375 MG, EACH EVENING
     Dates: start: 20120409
  8. HYDROCODONE [Concomitant]
     Indication: HEADACHE
     Dosage: UNK, PRN
     Dates: start: 20110207
  9. EXCEDRIN (MIGRAINE) [Concomitant]
     Indication: MIGRAINE
     Dosage: UNK, PRN
     Dates: start: 20000101
  10. BEN GAY [Concomitant]
     Indication: NECK PAIN
     Dosage: UNK, PRN
     Route: 061
     Dates: start: 20111025
  11. METOLAZONE [Concomitant]
     Indication: PULMONARY ARTERIAL HYPERTENSION
     Dosage: 5 MG, WEEKLY (1/W)
     Dates: start: 20110221, end: 20110724
  12. METOLAZONE [Concomitant]
     Dosage: 5 MG, 2/W
     Dates: start: 20110725
  13. POTASSIUM CHLORIDE [Concomitant]
     Indication: PROPHYLAXIS
     Dosage: 20 MEQ, QD
     Dates: start: 20110221
  14. LEXAPRO [Concomitant]
     Indication: DEPRESSION
     Dosage: 20 MG, QD
     Dates: start: 20080101, end: 20111028
  15. ADCIRCA [Suspect]
     Indication: PULMONARY ARTERIAL HYPERTENSION
     Dosage: 40 MG, QD
     Dates: start: 20100623
  16. IMODIUM [Concomitant]
     Indication: GASTROENTERITIS
     Dosage: UNK, PRN
     Route: 048
     Dates: start: 20110901
  17. BIOTENE [Concomitant]
     Dosage: UNK, PRN
     Route: 048
     Dates: start: 20120105
  18. ALDACTONE [Concomitant]
     Indication: PULMONARY ARTERIAL HYPERTENSION
     Dosage: 50 MG, BID
     Dates: start: 20101207
  19. OXYGEN [Concomitant]
     Dosage: 3 L, PRN
     Route: 045
     Dates: start: 20110201
  20. OXYGEN [Concomitant]
     Dosage: 5 L, PRN
     Route: 045
     Dates: start: 20110725
  21. ASPIRIN [Concomitant]
     Indication: PROPHYLAXIS
     Dosage: 81 MG, QD
     Dates: start: 20100201
  22. OXYGEN [Concomitant]
     Dosage: 2 L, PRN
     Route: 045
     Dates: start: 20110201
  23. URSODIL [Concomitant]
     Indication: BILIARY CIRRHOSIS PRIMARY
     Dosage: 500 MG, TID
     Dates: start: 20100201
  24. VITAMIN D [Concomitant]
     Indication: VITAMIN D DEFICIENCY
     Dosage: UNK
     Dates: start: 20110214, end: 20110613

REACTIONS (3)
  - RENAL FAILURE CHRONIC [None]
  - RENAL FAILURE ACUTE [None]
  - ELECTROCARDIOGRAM T WAVE ABNORMAL [None]
